FAERS Safety Report 7766562-1 (Version None)
Quarter: 2011Q3

REPORT INFORMATION
  Report Type: 
  Country: None (occurrence: None)
  Receive Date: 20110922
  Receipt Date: 20110913
  Transmission Date: 20111222
  Serious: Yes (Hospitalization)
  Sender: FDA-Public Use
  Company Number: JP-SP-2011-08647

PATIENT
  Age: 61 Year

DRUGS (1)
  1. IMMUCYST [Suspect]
     Indication: BLADDER CANCER
     Route: 043
     Dates: start: 20110701, end: 20110801

REACTIONS (4)
  - PYREXIA [None]
  - MALAISE [None]
  - HEPATIC FUNCTION ABNORMAL [None]
  - BOVINE TUBERCULOSIS [None]
